FAERS Safety Report 21504866 (Version 7)
Quarter: 2023Q4

REPORT INFORMATION
  Report Type: Other
  Country: CN (occurrence: None)
  Receive Date: 20221025
  Receipt Date: 20231120
  Transmission Date: 20240109
  Serious: Yes (Hospitalization, Other)
  Sender: FDA-Public Use
  Company Number: CN-ROCHE-3203886

PATIENT
  Age: 58 Year
  Sex: Male
  Weight: 51 kg

DRUGS (2)
  1. ALECENSA [Suspect]
     Active Substance: ALECTINIB HYDROCHLORIDE
     Indication: Lung adenocarcinoma stage IV
     Dosage: CAPSULES, 150 MG 224 CAPSULES (56 CAPSULES 4 SMALL BOXES)
     Route: 048
     Dates: start: 20200617
  2. ALECENSA [Suspect]
     Active Substance: ALECTINIB HYDROCHLORIDE
     Indication: Lung neoplasm malignant
     Dosage: CAPSULES, 150 MG 224 CAPSULES (56 CAPSULES 4 SMALL BOXES)
     Route: 048
     Dates: start: 20231030

REACTIONS (16)
  - Blood bilirubin increased [Not Recovered/Not Resolved]
  - Bile duct stone [Not Recovered/Not Resolved]
  - Muscular weakness [Not Recovered/Not Resolved]
  - Myalgia [Recovered/Resolved]
  - Constipation [Recovered/Resolved]
  - Blood uric acid increased [Recovering/Resolving]
  - Sexual dysfunction [Not Recovered/Not Resolved]
  - Weight decreased [Recovering/Resolving]
  - Radiation pneumonitis [Recovered/Resolved]
  - Cholelithiasis [Not Recovered/Not Resolved]
  - Biliary colic [Not Recovered/Not Resolved]
  - Decreased appetite [Not Recovered/Not Resolved]
  - Muscular weakness [Not Recovered/Not Resolved]
  - Weight decreased [Not Recovered/Not Resolved]
  - Transaminases increased [Recovering/Resolving]
  - Surgery [Unknown]

NARRATIVE: CASE EVENT DATE: 20200710
